FAERS Safety Report 6622277-4 (Version None)
Quarter: 2010Q1

REPORT INFORMATION
  Report Type: 
  Country: None (occurrence: None)
  Receive Date: 20100310
  Receipt Date: 20100304
  Transmission Date: 20100710
  Serious: Yes (Hospitalization, Other)
  Sender: FDA-Public Use
  Company Number: US-ASTRAZENECA-2006UW20176

PATIENT
  Age: 488 Month
  Sex: Female
  Weight: 63 kg

DRUGS (32)
  1. SEROQUEL [Suspect]
     Indication: MAJOR DEPRESSION
     Dosage: 25 TO 300 MG
     Route: 048
     Dates: start: 20020724, end: 20060101
  2. SEROQUEL [Suspect]
     Indication: ANXIETY
     Dosage: 25 TO 300 MG
     Route: 048
     Dates: start: 20020724, end: 20060101
  3. SEROQUEL [Suspect]
     Indication: PANIC ATTACK
     Dosage: 25 TO 300 MG
     Route: 048
     Dates: start: 20020724, end: 20060101
  4. SEROQUEL [Suspect]
     Indication: PANIC DISORDER WITH AGORAPHOBIA
     Dosage: 25 TO 300 MG
     Route: 048
     Dates: start: 20020724, end: 20060101
  5. SEROQUEL [Suspect]
     Indication: PANIC DISORDER
     Dosage: 25 TO 300 MG
     Route: 048
     Dates: start: 20020724, end: 20060101
  6. RISPERDAL [Suspect]
     Indication: DEPRESSION
     Dosage: 1MG TO 4 MG
     Dates: start: 19930101, end: 20021017
  7. RISPERDAL [Suspect]
     Indication: PSYCHOTIC DISORDER
     Dosage: 1MG TO 4 MG
     Dates: start: 19930101, end: 20021017
  8. RISPERDAL [Suspect]
     Indication: ANXIETY
     Dosage: 1MG TO 4 MG
     Dates: start: 19930101, end: 20021017
  9. RISPERDAL [Suspect]
     Indication: PANIC ATTACK
     Dosage: 1MG TO 4 MG
     Dates: start: 19930101, end: 20021017
  10. RISPERDAL [Suspect]
     Indication: PANIC DISORDER WITH AGORAPHOBIA
     Dosage: 1MG TO 4 MG
     Dates: start: 19930101, end: 20021017
  11. RISPERDAL [Suspect]
     Indication: MAJOR DEPRESSION
     Dosage: 1MG TO 4 MG
     Dates: start: 19930101, end: 20021017
  12. ZOLOFT [Concomitant]
     Dates: start: 19980701, end: 19980901
  13. XANAX [Concomitant]
     Dosage: 0.5 MG TO 4.5 MG
     Dates: start: 19930701, end: 19950701
  14. WELLBUTRIN [Concomitant]
     Dosage: 75 TO 100 MG
     Dates: start: 19940801, end: 20010711
  15. VALIUM [Concomitant]
     Dosage: 3MG TO 10 MG
     Dates: start: 20061013, end: 20061018
  16. TRAZODONE HCL [Concomitant]
     Dosage: 50 MG TO 600  MG
     Dates: start: 20001024, end: 20080601
  17. TOFRANIL [Concomitant]
     Dosage: 25 MG TO 225 MG
     Dates: start: 19950301, end: 19950401
  18. TEGRETOL [Concomitant]
     Dosage: 200 TO 300 MG
     Dates: start: 19950301, end: 19950401
  19. SERZONE [Concomitant]
     Dates: start: 20000829
  20. REMERON [Concomitant]
     Dosage: 15 TO 45 MG
     Dates: start: 20020724, end: 20031013
  21. PROZAC [Concomitant]
     Dosage: 40 TO 80 MG
     Dates: start: 19940501, end: 19940601
  22. PAXIL [Concomitant]
     Dosage: 10 MG- 40 MG
     Dates: start: 19930701, end: 20001024
  23. NEURONTIN [Concomitant]
     Dosage: 200 TO 800 MG
     Dates: start: 20030826, end: 20060601
  24. LITHIUM [Concomitant]
     Dosage: 300 MG TWO TIMES
     Dates: start: 19940801
  25. KLONOPIN [Concomitant]
     Dosage: 0.5 MG TO 5 MG
     Dates: start: 19950401, end: 20061201
  26. EFFEXOR [Concomitant]
     Dosage: 37.5 MG TO 75 MG
     Dates: start: 19940601, end: 20061201
  27. CYMBALTA [Concomitant]
     Dosage: 30 MG TO 90 MG
     Dates: start: 20050817, end: 20061204
  28. CELEXA [Concomitant]
     Dosage: 8 MG TO 80 MG
     Dates: start: 20001024, end: 20030831
  29. ATIVAN [Concomitant]
     Dosage: 1MG TO 2 MG
     Dates: start: 20021008, end: 20060531
  30. GEODON [Concomitant]
     Dates: start: 20060501
  31. ABILIFY [Concomitant]
     Dates: start: 20060501, end: 20060601
  32. PAROXETINE HCL [Concomitant]
     Dates: start: 20041120, end: 20041122

REACTIONS (5)
  - CORONARY ARTERY DISEASE [None]
  - MOVEMENT DISORDER [None]
  - MULTIPLE SCLEROSIS [None]
  - TARDIVE DYSKINESIA [None]
  - TYPE 2 DIABETES MELLITUS [None]
